FAERS Safety Report 12079259 (Version 1)
Quarter: 2016Q1

REPORT INFORMATION
  Report Type: Spontaneous
  Country: US (occurrence: US)
  Receive Date: 20160216
  Receipt Date: 20160216
  Transmission Date: 20160526
  Serious: No
  Sender: FDA-Public Use
  Company Number: US-ASTRAZENECA-2016SE12986

PATIENT
  Sex: Male
  Weight: 93 kg

DRUGS (1)
  1. BYDUREON [Suspect]
     Active Substance: EXENATIDE
     Indication: DIABETES MELLITUS
     Route: 058

REACTIONS (5)
  - Injection site haemorrhage [Unknown]
  - Intentional device misuse [Unknown]
  - Weight decreased [Unknown]
  - Product quality issue [Unknown]
  - Underdose [Unknown]
